FAERS Safety Report 8875720 (Version 1)
Quarter: 2012Q4

REPORT INFORMATION
  Report Type: 
  Country: US (occurrence: US)
  Receive Date: 20121023
  Receipt Date: 20121023
  Transmission Date: 20130627
  Serious: Yes (Other)
  Sender: FDA-Public Use
  Company Number: US-JNJFOC-20121012180

PATIENT
  Sex: Female

DRUGS (1)
  1. PANCREAZE [Suspect]
     Indication: DYSPEPSIA
     Dosage: 6 capsules with each meal
     Route: 048

REACTIONS (2)
  - Colon cancer [Unknown]
  - Drug ineffective [Not Recovered/Not Resolved]
